FAERS Safety Report 10541102 (Version 1)
Quarter: 2014Q4

REPORT INFORMATION
  Report Type: Spontaneous
  Country: US (occurrence: None)
  Receive Date: 20141023
  Receipt Date: 20141023
  Transmission Date: 20150529
  Serious: No
  Sender: FDA-Public Use
  Company Number: None

PATIENT
  Age: 57 Year
  Sex: Female
  Weight: 63.05 kg

DRUGS (1)
  1. BOTOX [Suspect]
     Active Substance: ONABOTULINUMTOXINA
     Indication: MIGRAINE
     Dates: start: 20140430

REACTIONS (5)
  - Fatigue [None]
  - Muscle tightness [None]
  - Headache [None]
  - Neck pain [None]
  - Paraesthesia [None]

NARRATIVE: CASE EVENT DATE: 20140430
